FAERS Safety Report 7640454-0 (Version None)
Quarter: 2011Q3

REPORT INFORMATION
  Report Type: 
  Country: None (occurrence: None)
  Receive Date: 20110728
  Receipt Date: 20110719
  Transmission Date: 20111222
  Serious: No
  Sender: FDA-Public Use
  Company Number: US-BIOGENIDEC-2010BI027843

PATIENT
  Sex: Female

DRUGS (3)
  1. BENADRYL [Concomitant]
     Indication: PREMEDICATION
     Route: 048
  2. TYLENOL-500 [Concomitant]
  3. TYSABRI [Suspect]
     Indication: MULTIPLE SCLEROSIS
     Route: 042
     Dates: start: 20090903, end: 20100805

REACTIONS (13)
  - BLOOD PRESSURE INCREASED [None]
  - MUSCULOSKELETAL DISORDER [None]
  - PROGRESSIVE MULTIPLE SCLEROSIS [None]
  - COORDINATION ABNORMAL [None]
  - DIPLOPIA [None]
  - DRUG INEFFECTIVE [None]
  - DYSSTASIA [None]
  - GAIT DISTURBANCE [None]
  - DIZZINESS [None]
  - MULTIPLE SCLEROSIS RELAPSE [None]
  - MUSCULAR WEAKNESS [None]
  - TREMOR [None]
  - FATIGUE [None]
